FAERS Safety Report 5022720-0 (Version None)
Quarter: 2006Q2

REPORT INFORMATION
  Report Type: 
  Country: None (occurrence: None)
  Receive Date: 20060609
  Receipt Date: 20060527
  Transmission Date: 20061013
  Serious: Yes (Hospitalization, Other)
  Sender: FDA-Public Use
  Company Number: US-AMGEN-STX181099

PATIENT
  Sex: Male
  Weight: 89 kg

DRUGS (2)
  1. ENBREL [Suspect]
     Indication: ANKYLOSING SPONDYLITIS
     Route: 058
     Dates: start: 20050628
  2. NAPROXEN [Concomitant]
     Route: 048
     Dates: start: 20060217

REACTIONS (7)
  - CONDITION AGGRAVATED [None]
  - CROHN'S DISEASE [None]
  - GASTRITIS [None]
  - PANCREATITIS ACUTE [None]
  - PNEUMONIA BACTERIAL [None]
  - RHINITIS ALLERGIC [None]
  - SPONDYLOARTHROPATHY [None]
